FAERS Safety Report 8008492-6 (Version None)
Quarter: 2011Q4

REPORT INFORMATION
  Report Type: 
  Country: None (occurrence: None)
  Receive Date: 20111227
  Receipt Date: 20111216
  Transmission Date: 20120403
  Serious: Yes (Other)
  Sender: FDA-Public Use
  Company Number: CN-ASTRAZENECA-2011SE75993

PATIENT
  Sex: Female

DRUGS (4)
  1. LINGER'S SOLUTION [Suspect]
     Route: 042
  2. LORNOXICAM [Suspect]
     Dosage: 16 MG WITH NACL WITH RATE OF 20 GOUTTES/MIN
     Route: 042
  3. MISOPROSTOL [Suspect]
     Route: 048
  4. PROPOFOL [Suspect]
     Indication: ANAESTHESIA
     Route: 042

REACTIONS (1)
  - RESPIRATORY DEPRESSION [None]
